FAERS Safety Report 24132400 (Version 1)
Quarter: 2024Q3

REPORT INFORMATION
  Report Type: Spontaneous
  Country: US (occurrence: US)
  Receive Date: 20240724
  Receipt Date: 20240724
  Transmission Date: 20241016
  Serious: Yes (Other)
  Sender: FRESENIUS KABI
  Company Number: US-FreseniusKabi-FK202411144

PATIENT
  Age: 59 Year
  Sex: Male
  Weight: 60.1 kg

DRUGS (11)
  1. MESNA [Suspect]
     Active Substance: MESNA
     Indication: Product used for unknown indication
     Dosage: 300 MG/M2 CYCLIC (CYCLE 1,3: DAYS 1-3)
  2. INOTUZUMAB OZOGAMICIN [Suspect]
     Active Substance: INOTUZUMAB OZOGAMICIN
     Indication: Product used for unknown indication
     Dosage: ROUTE OF ADMINISTRATION: INTRAVENOUS?CYCLIC (CYCLE 1: 0.6 MG/M2 D2, 0.3 MG/M2 D8. CYCLES 2-4: 0.3 MG
     Dates: end: 20240227
  3. METHOTREXATE SODIUM [Suspect]
     Active Substance: METHOTREXATE SODIUM
     Indication: Product used for unknown indication
     Dosage: FIRST REGIMEN AT 12 MG CYCLIC (CYCLE 1-2: DAY 2, DAY 8)?ROUTE: INTRATHECAL
  4. METHOTREXATE SODIUM [Suspect]
     Active Substance: METHOTREXATE SODIUM
     Dosage: SECOND REGIMEN: 250 MG/M2 CYCLIC (CYCLE 2,4: DAY 1)?ROUTE: INTRAVENOUS
     Dates: start: 20240220, end: 20240220
  5. VINCRISTINE SULFATE [Suspect]
     Active Substance: VINCRISTINE SULFATE
     Indication: Product used for unknown indication
     Dosage: ROUTE: INTRAVENOUS?2 MG CYCLIC (CYCLE 1,3: DAY 1, DAY 8)
  6. METHYLPREDNISOLONE SODIUM SUCCINATE [Suspect]
     Active Substance: METHYLPREDNISOLONE SODIUM SUCCINATE
     Indication: Product used for unknown indication
     Dosage: ROUTE: INTRAVENOUS?50 MG CYCLIC (CYCLE 2,4: EVERY 12 HRS X 6 DOSES, DAYS 1-3)
     Dates: start: 20240220, end: 20240223
  7. CYTARABINE [Suspect]
     Active Substance: CYTARABINE
     Indication: Product used for unknown indication
     Dosage: ROUTE: INTRATHECAL?FIRST REGIMEN AT 100 MG CYCLIC (CYCLE 1-2: DAY 2, DAY 8)
  8. CYTARABINE [Suspect]
     Active Substance: CYTARABINE
     Dosage: ROUTE: INTRAVENOUS?SECOND REGIMEN: AT CYCLIC (CYCLE 2,4: 0.5 G/M2/DOSE EVERY 12 HRS X 4 DOSES, DAYS
     Route: 037
     Dates: start: 20240222, end: 20240224
  9. RITUXIMAB [Suspect]
     Active Substance: RITUXIMAB
     Indication: Product used for unknown indication
     Dosage: 375 MG/M2 CYCLIC (CYCLE 1-4: DAY 2, DAY 8)?ROUTE: INTRAVENOUS
     Dates: start: 20240220, end: 20240220
  10. CYCLOPHOSPHAMIDE [Suspect]
     Active Substance: CYCLOPHOSPHAMIDE
     Indication: Product used for unknown indication
     Dosage: ROUTE: INTRAVENOUS?150 MG/M2 CYCLIC (CYCLE 1,3: EVERY 12 HRS X 6 DOSES, DAYS 1-3)
  11. DEXAMETHASONE [Suspect]
     Active Substance: DEXAMETHASONE
     Indication: Product used for unknown indication
     Dosage: 20 MG CYCLIC (CYCLE 1,3: IV OR PO DAYS 1-4, DAYS 11-14)

REACTIONS (2)
  - Lymphocyte count decreased [Recovered/Resolved]
  - Neutrophil count decreased [Recovered/Resolved]

NARRATIVE: CASE EVENT DATE: 20240220
